FAERS Safety Report 10092084 (Version 1)
Quarter: 2014Q2

REPORT INFORMATION
  Report Type: Spontaneous
  Country: JP (occurrence: JP)
  Receive Date: 20140421
  Receipt Date: 20140421
  Transmission Date: 20141212
  Serious: Yes (Life-Threatening)
  Sender: FDA-Public Use
  Company Number: JP-MYLANLABS-2014S1007967

PATIENT
  Age: 81 Year
  Sex: Male
  Weight: 46 kg

DRUGS (11)
  1. REMIFENTANIL [Suspect]
     Indication: INDUCTION OF ANAESTHESIA
     Dosage: 0.5 MICROG/KG/MIN
     Route: 065
  2. REMIFENTANIL [Suspect]
     Indication: MAINTENANCE OF ANAESTHESIA
     Dosage: 0.5 MICROG/KG/MIN
     Route: 065
  3. REMIFENTANIL [Suspect]
     Indication: INDUCTION OF ANAESTHESIA
     Dosage: 0.25 MICROG/KG/MIN
     Route: 065
  4. REMIFENTANIL [Suspect]
     Indication: MAINTENANCE OF ANAESTHESIA
     Dosage: 0.25 MICROG/KG/MIN
     Route: 065
  5. PROPOFOL [Suspect]
     Indication: INDUCTION OF ANAESTHESIA
     Dosage: 50MG
     Route: 065
  6. PROPOFOL [Suspect]
     Dosage: 50MG
     Route: 065
  7. SEVOFLURANE [Suspect]
     Indication: MAINTENANCE OF ANAESTHESIA
     Dosage: 1%-1.5%
     Route: 065
  8. LIDOCAINE [Suspect]
     Dosage: 5ML OF 1%; THORACIC INFUSION AT 4 ML/H
     Route: 008
  9. FENTANYL [Suspect]
     Indication: MAINTENANCE OF ANAESTHESIA
     Dosage: 100MICROG; THORACIC INFUSION AT 4 ML/H
     Route: 008
  10. LEVOBUPIVACAINE [Suspect]
     Indication: MAINTENANCE OF ANAESTHESIA
     Dosage: 0.15%; THORACIC INFUSION AT 4 ML/H
     Route: 008
  11. SALMETEROL [Concomitant]
     Indication: EMPHYSEMA
     Route: 065

REACTIONS (2)
  - Bradycardia [Recovered/Resolved]
  - Cardiac arrest [Recovered/Resolved]
